FAERS Safety Report 16768148 (Version 1)
Quarter: 2019Q3

REPORT INFORMATION
  Report Type: Spontaneous
  Country: DE (occurrence: DE)
  Receive Date: 20190903
  Receipt Date: 20190903
  Transmission Date: 20191005
  Serious: Yes (Other)
  Sender: FDA-Public Use
  Company Number: DE-JNJFOC-20190900423

PATIENT
  Age: 83 Year
  Sex: Female

DRUGS (1)
  1. RIVAROXABAN [Suspect]
     Active Substance: RIVAROXABAN
     Indication: ATRIAL FIBRILLATION
     Dosage: 1 DF, OM
     Route: 048
     Dates: start: 20180101, end: 20190815

REACTIONS (3)
  - Haemorrhage [Recovered/Resolved]
  - Gastritis erosive [Unknown]
  - Anaemia [Unknown]

NARRATIVE: CASE EVENT DATE: 20190816
